FAERS Safety Report 10339594 (Version 3)
Quarter: 2015Q2

REPORT INFORMATION
  Report Type: Spontaneous
  Country: US (occurrence: US)
  Receive Date: 20140724
  Receipt Date: 20150624
  Transmission Date: 20150821
  Serious: No
  Sender: FDA-Public Use
  Company Number: US-MYLANLABS-2014S1015672

PATIENT
  Age: 71 Year
  Sex: Male
  Weight: 95.26 kg

DRUGS (4)
  1. ACYCLOVIR OINTMENT USP, 5% [Suspect]
     Active Substance: ACYCLOVIR
     Indication: ORAL HERPES
     Dosage: 5 %,BID
     Route: 061
     Dates: start: 20140404, end: 201406
  2. VALACICLOVIR [Suspect]
     Active Substance: VALACYCLOVIR HYDROCHLORIDE
     Dosage: 2 G,BID
     Route: 048
     Dates: start: 20140430, end: 201405
  3. VALACICLOVIR [Suspect]
     Active Substance: VALACYCLOVIR HYDROCHLORIDE
     Dosage: 500 MG,QID
     Route: 048
     Dates: start: 20140409, end: 20140417
  4. VALACICLOVIR [Suspect]
     Active Substance: VALACYCLOVIR HYDROCHLORIDE
     Dosage: 2 G,BID
     Route: 048
     Dates: start: 20140404, end: 20140409

REACTIONS (2)
  - Drug ineffective [Not Recovered/Not Resolved]
  - Oral herpes [Not Recovered/Not Resolved]

NARRATIVE: CASE EVENT DATE: 20140404
